FAERS Safety Report 25255902 (Version 1)
Quarter: 2025Q2

REPORT INFORMATION
  Report Type: Spontaneous
  Country: BE (occurrence: BE)
  Receive Date: 20250430
  Receipt Date: 20250430
  Transmission Date: 20250717
  Serious: Yes (Other)
  Sender: PFIZER
  Company Number: BE-PFIZER INC-PV202500050349

PATIENT
  Age: 46 Year
  Sex: Female

DRUGS (1)
  1. TRASTUZUMAB [Suspect]
     Active Substance: TRASTUZUMAB

REACTIONS (2)
  - Pulmonary granuloma [Recovering/Resolving]
  - Restrictive pulmonary disease [Recovering/Resolving]
